FAERS Safety Report 15601099 (Version 3)
Quarter: 2020Q3

REPORT INFORMATION
  Report Type: Report from Study
  Country: US (occurrence: US)
  Receive Date: 20181109
  Receipt Date: 20200807
  Transmission Date: 20201102
  Serious: No
  Sender: FDA-Public Use
  Company Number: US-KYOWAKIRIN-2018BKK006650

PATIENT

DRUGS (4)
  1. CRYSVITA [Suspect]
     Active Substance: BUROSUMAB-TWZA
     Dosage: UNKNOWN
     Route: 058
     Dates: start: 2018
  2. CRYSVITA [Suspect]
     Active Substance: BUROSUMAB-TWZA
     Dosage: 20 MG, EVERY TWO WEEKS
     Route: 058
     Dates: start: 20180914
  3. CRYSVITA [Suspect]
     Active Substance: BUROSUMAB-TWZA
     Indication: HYPOPHOSPHATAEMIA
     Dosage: 90 MG, EVERY 4 WEEKS
     Route: 065
  4. CRYSVITA [Suspect]
     Active Substance: BUROSUMAB-TWZA
     Indication: HYPOPHOSPHATAEMIA
     Dosage: 50 MG, EVERY TWO WEEKS
     Route: 058
     Dates: start: 20180621

REACTIONS (1)
  - Blood phosphorus decreased [Not Recovered/Not Resolved]

NARRATIVE: CASE EVENT DATE: 2018
